FAERS Safety Report 25551930 (Version 2)
Quarter: 2025Q3

REPORT INFORMATION
  Report Type: Report from Study
  Country: AU (occurrence: AU)
  Receive Date: 20250714
  Receipt Date: 20250808
  Transmission Date: 20251020
  Serious: Yes (Hospitalization, Other)
  Sender: UCB
  Company Number: AU-UCBSA-2025042573

PATIENT
  Sex: Male

DRUGS (1)
  1. ZILUCOPLAN [Suspect]
     Active Substance: ZILUCOPLAN
     Indication: Product used for unknown indication

REACTIONS (2)
  - Pneumonia [Unknown]
  - Myasthenia gravis [Unknown]
